FAERS Safety Report 12276804 (Version 2)
Quarter: 2016Q2

REPORT INFORMATION
  Report Type: Spontaneous
  Country: GB (occurrence: GB)
  Receive Date: 20160418
  Receipt Date: 20160419
  Transmission Date: 20160815
  Serious: Yes (Life-Threatening, Hospitalization)
  Sender: FDA-Public Use
  Company Number: GB-DRREDDYS-GER/UKI/16/0078681

PATIENT
  Age: 44 Year
  Sex: Male
  Weight: 82 kg

DRUGS (12)
  1. ASPIRIN. [Concomitant]
     Active Substance: ASPIRIN
     Indication: PRODUCT USED FOR UNKNOWN INDICATION
  2. HALOPERIDOL. [Concomitant]
     Active Substance: HALOPERIDOL
     Indication: PRODUCT USED FOR UNKNOWN INDICATION
  3. REDOXON MULTIVITAMINS [Concomitant]
     Indication: PRODUCT USED FOR UNKNOWN INDICATION
  4. CLONAZEPAM. [Interacting]
     Active Substance: CLONAZEPAM
     Indication: AGITATION
     Dosage: IN FOUR DOSES
     Route: 048
     Dates: start: 20160217
  5. ANTIHISTAMINES [Concomitant]
     Active Substance: ANTIHISTAMINES NOS
     Indication: PRODUCT USED FOR UNKNOWN INDICATION
  6. OLANZAPINE. [Suspect]
     Active Substance: OLANZAPINE
     Indication: HYPOMANIA
     Dosage: NOCTE
     Route: 048
     Dates: start: 20160217
  7. OMEGA-3 FISH OIL [Concomitant]
     Active Substance: FISH OIL\OMEGA-3 FATTY ACIDS
     Indication: PRODUCT USED FOR UNKNOWN INDICATION
  8. ANTIBIOTICS [Concomitant]
     Active Substance: UNSPECIFIED INGREDIENT
     Indication: PRODUCT USED FOR UNKNOWN INDICATION
  9. INNOHEP [Concomitant]
     Active Substance: TINZAPARIN SODIUM
     Indication: PRODUCT USED FOR UNKNOWN INDICATION
  10. EPILIM [Interacting]
     Active Substance: VALPROATE SODIUM
     Indication: HYPOMANIA
     Dosage: UNSURE BUT MAYBE IN THE RANGE OF 0.5-1G DAILY
     Route: 048
     Dates: start: 20160217
  11. FLUCLOXACILLIN [Concomitant]
     Active Substance: FLUCLOXACILLIN
     Indication: PRODUCT USED FOR UNKNOWN INDICATION
     Dates: start: 20160401
  12. PHENERGAN [Interacting]
     Active Substance: PROMETHAZINE HYDROCHLORIDE
     Indication: AGITATION
     Dosage: UNSURE, PERHAPS 25MG DAILY
     Route: 048
     Dates: start: 20160217

REACTIONS (12)
  - Aggression [Not Recovered/Not Resolved]
  - Oedema peripheral [Unknown]
  - Cerebrovascular accident [Unknown]
  - Reaction to drug excipients [Unknown]
  - Drug hypersensitivity [Not Recovered/Not Resolved]
  - Liver injury [Not Recovered/Not Resolved]
  - Pruritus [Unknown]
  - Rash maculo-papular [Unknown]
  - Breathing-related sleep disorder [Unknown]
  - Drug interaction [Unknown]
  - Verbal abuse [Not Recovered/Not Resolved]
  - Localised infection [Unknown]

NARRATIVE: CASE EVENT DATE: 20160217
